FAERS Safety Report 10004494 (Version 2)
Quarter: 2014Q1

REPORT INFORMATION
  Report Type: Spontaneous
  Country: US (occurrence: US)
  Receive Date: 20140312
  Receipt Date: 20140312
  Transmission Date: 20141002
  Serious: No
  Sender: FDA-Public Use
  Company Number: US-GILEAD-2012-0061355

PATIENT
  Sex: Female

DRUGS (3)
  1. LETAIRIS [Suspect]
     Indication: PULMONARY ARTERIAL HYPERTENSION
     Dosage: 5 MG, QD
     Route: 048
     Dates: start: 20101203
  2. TYVASO [Suspect]
  3. REVATIO [Concomitant]

REACTIONS (6)
  - Throat irritation [Unknown]
  - Cough [Unknown]
  - Dysphonia [Unknown]
  - Oropharyngeal pain [Unknown]
  - Headache [Unknown]
  - Flushing [Unknown]
